FAERS Safety Report 7770647-3 (Version None)
Quarter: 2011Q3

REPORT INFORMATION
  Report Type: 
  Country: None (occurrence: None)
  Receive Date: 20110922
  Receipt Date: 20110921
  Transmission Date: 20111222
  Serious: Yes (Death, Hospitalization, Other)
  Sender: FDA-Public Use
  Company Number: PHHY2011NZ77155

PATIENT
  Sex: Female

DRUGS (11)
  1. CLONAZEPAM [Concomitant]
     Indication: DEPRESSION
     Dosage: 1MG, NOCTE
  2. CLOZAPINE [Suspect]
     Indication: SCHIZOPHRENIA
     Dosage: 50 MG MANE, 75 MG NOCTE (TOTAL 125 MG/DAY)
     Dates: start: 20050228
  3. ASPIRIN [Concomitant]
     Indication: PROPHYLAXIS
     Dosage: 100 MG, MANE
  4. LOXAZOL [Concomitant]
     Indication: CONSTIPATION
     Dosage: 2 DF, UNK
  5. CLOZAPINE [Suspect]
     Indication: PSYCHOTIC DISORDER
  6. CLONAZEPAM [Concomitant]
     Indication: INSOMNIA
  7. CLOZAPINE [Suspect]
     Indication: DEPRESSION
  8. ZOPICLONE [Concomitant]
     Indication: INSOMNIA
     Dosage: 15 MG, NOCTE
  9. LACTULOSE [Concomitant]
     Indication: CONSTIPATION
  10. VENLAFAXINE HYDROCHLORIDE [Concomitant]
     Indication: DEPRESSION
     Dosage: 150 MG, MANE
  11. ATROPINE [Concomitant]
     Indication: SALIVARY HYPERSECRETION

REACTIONS (9)
  - HAEMOGLOBIN DECREASED [None]
  - NEUTROPHIL COUNT INCREASED [None]
  - TROPONIN INCREASED [None]
  - RESPIRATORY ARREST [None]
  - BLOOD CREATININE INCREASED [None]
  - WHITE BLOOD CELL COUNT INCREASED [None]
  - PNEUMONIA [None]
  - MYOCARDIAL INFARCTION [None]
  - ATRIOVENTRICULAR BLOCK [None]
